FAERS Safety Report 13180255 (Version 1)
Quarter: 2017Q1

REPORT INFORMATION
  Report Type: Spontaneous
  Country: US (occurrence: US)
  Receive Date: 20170202
  Receipt Date: 20170202
  Transmission Date: 20170428
  Serious: No
  Sender: FDA-Public Use
  Company Number: US-B.I. PHARMACEUTICALS,INC./RIDGEFIELD-2017-BI-004393

PATIENT
  Sex: Male

DRUGS (5)
  1. MIRAPEX [Suspect]
     Active Substance: PRAMIPEXOLE DIHYDROCHLORIDE
     Indication: PARKINSON^S DISEASE
     Dosage: 1 TABLET ONCE A DAY;  FORMULATION: TABLET;  ADMINISTRATION CORRECT? NR(NOT REPORTED)  ACTION(S) TAKE
     Route: 048
     Dates: start: 2009, end: 2016
  2. CARBIDOPA / LEVODOPA [Concomitant]
     Active Substance: CARBIDOPA\LEVODOPA
     Indication: PARKINSON^S DISEASE
     Dosage: 1 TABLET THREE TIMES PER DAY;  FORM STRENGTH: 25/100MG; FORMULATION: TABLET
     Route: 048
     Dates: start: 2008
  3. MIRAPEX [Suspect]
     Active Substance: PRAMIPEXOLE DIHYDROCHLORIDE
     Dosage: 1 TABLET ONCE A DAY;  FORMULATION: TABLET;  ADMINISTRATION CORRECT? YES ?ACTION(S) TAKEN WITH PRODUC
     Route: 048
     Dates: start: 2016, end: 2016
  4. MIRAPEX [Suspect]
     Active Substance: PRAMIPEXOLE DIHYDROCHLORIDE
     Dosage: 1 TABLET DAILY;  FORM STRENGTH: 0.75 MG; FORMULATION: TABLET? ADMINISTRATION CORRECT? YES  ACTION(S)
     Route: 048
     Dates: start: 2016, end: 20170119
  5. NAMZARIC [Concomitant]
     Active Substance: DONEPEZIL HYDROCHLORIDE\MEMANTINE HYDROCHLORIDE
     Indication: DEMENTIA ALZHEIMER^S TYPE
     Dosage: FORMULATION: TABLET;
     Route: 048

REACTIONS (5)
  - Hallucination, visual [Recovered/Resolved]
  - Haemorrhoidal haemorrhage [Recovered/Resolved]
  - Tremor [Recovered/Resolved]
  - Hallucination, visual [Not Recovered/Not Resolved]
  - Prostatic disorder [Recovered/Resolved]

NARRATIVE: CASE EVENT DATE: 2014
